FAERS Safety Report 12965898 (Version 2)
Quarter: 2016Q4

REPORT INFORMATION
  Report Type: Report from Study
  Country: TN (occurrence: TN)
  Receive Date: 20161122
  Receipt Date: 20161201
  Transmission Date: 20170207
  Serious: Yes (Hospitalization, Other)
  Sender: FDA-Public Use
  Company Number: TN-APOPHARMA USA, INC.-2016AP014758

PATIENT
  Age: 9 Year
  Sex: Male

DRUGS (6)
  1. DEFERIPRONE [Suspect]
     Active Substance: DEFERIPRONE
     Dosage: 25 MG/KG, TID
     Route: 048
     Dates: start: 20151214, end: 20160404
  2. CALPEROS                           /00944201/ [Concomitant]
     Indication: OSTEOPOROSIS PROPHYLAXIS
     Dosage: 500 MG, QD
     Route: 048
     Dates: start: 20121105, end: 20161109
  3. DEFERIPRONE [Suspect]
     Active Substance: DEFERIPRONE
     Dosage: 29.17 MG/KG, TID
     Route: 048
     Dates: start: 20160404, end: 20160530
  4. DEFERIPRONE [Suspect]
     Active Substance: DEFERIPRONE
     Indication: THALASSAEMIA BETA
     Dosage: 24.3 MG/KG, TID
     Route: 048
     Dates: start: 20160530, end: 20161109
  5. STEROGYL                           /00107901/ [Concomitant]
     Indication: OSTEOPOROSIS PROPHYLAXIS
     Dosage: 1200 IU, QD
     Route: 048
     Dates: start: 20121105, end: 20161109
  6. FOLIC ACID. [Concomitant]
     Active Substance: FOLIC ACID
     Indication: SUPPLEMENTATION THERAPY
     Dosage: 5 MG, QD
     Route: 048
     Dates: start: 20081113, end: 20161109

REACTIONS (2)
  - Febrile convulsion [Recovered/Resolved]
  - Coma [Recovered/Resolved]

NARRATIVE: CASE EVENT DATE: 20161109
